FAERS Safety Report 5457840-X (Version None)
Quarter: 2007Q3

REPORT INFORMATION
  Report Type: 
  Country: None (occurrence: None)
  Receive Date: 20070918
  Receipt Date: 20070910
  Transmission Date: 20080115
  Serious: Yes (Death)
  Sender: FDA-Public Use
  Company Number: US-PFIZER INC-2007075761

PATIENT

DRUGS (1)
  1. SUTENT [Suspect]

REACTIONS (1)
  - TUMOUR LYSIS SYNDROME [None]
